FAERS Safety Report 18497862 (Version 1)
Quarter: 2020Q4

REPORT INFORMATION
  Report Type: Spontaneous
  Country: US (occurrence: US)
  Receive Date: 20201112
  Receipt Date: 20201112
  Transmission Date: 20210114
  Serious: No
  Sender: FDA-Public Use
  Company Number: US-THERAPEUTICSMD-2020TMD03844

PATIENT
  Age: 55 Year
  Sex: Female
  Weight: 89.8 kg

DRUGS (7)
  1. BIJUVA [Suspect]
     Active Substance: ESTRADIOL\PROGESTERONE
     Indication: NIGHT SWEATS
  2. MULTIVITAMIN [Concomitant]
     Active Substance: VITAMINS
  3. CLARITIN [Concomitant]
     Active Substance: LORATADINE
  4. VITAMIN E [Concomitant]
     Active Substance: .ALPHA.-TOCOPHEROL
  5. BIJUVA [Suspect]
     Active Substance: ESTRADIOL\PROGESTERONE
     Indication: MOOD SWINGS
     Dosage: 1/100 MG (1 CAPSULE), 1X/DAY
     Route: 048
     Dates: start: 20200822
  6. BIJUVA [Suspect]
     Active Substance: ESTRADIOL\PROGESTERONE
     Indication: HOT FLUSH
  7. PEPCID [Concomitant]
     Active Substance: FAMOTIDINE

REACTIONS (2)
  - Palpitations [Not Recovered/Not Resolved]
  - Headache [Not Recovered/Not Resolved]

NARRATIVE: CASE EVENT DATE: 20200824
